FAERS Safety Report 10568458 (Version 1)
Quarter: 2014Q4

REPORT INFORMATION
  Report Type: Spontaneous
  Country: TW (occurrence: TW)
  Receive Date: 20141106
  Receipt Date: 20141106
  Transmission Date: 20150529
  Serious: Yes (Other)
  Sender: FDA-Public Use
  Company Number: TW-ACTAVIS-2014-23367

PATIENT
  Age: 50 Year
  Sex: Male

DRUGS (7)
  1. VALPROATE [Concomitant]
     Active Substance: VALPROATE SODIUM
     Indication: SCHIZOPHRENIA
     Dosage: 2000 MG, DAILY
     Route: 065
  2. PROPRANOLOL [Suspect]
     Active Substance: PROPRANOLOL\PROPRANOLOL HYDROCHLORIDE
     Indication: AKATHISIA
     Dosage: 40 MG, DAILY
     Route: 065
  3. AMISULPRIDE [Concomitant]
     Active Substance: AMISULPRIDE
     Indication: SCHIZOPHRENIA
     Dosage: 400 MG, DAILY
     Route: 065
  4. HALOPERIDOL (UNKNOWN) [Suspect]
     Active Substance: HALOPERIDOL
     Indication: SCHIZOPHRENIA
     Dosage: 17.5 MG, DAILY
     Route: 065
  5. CLONIDINE (UNKNOWN) [Suspect]
     Active Substance: CLONIDINE
     Indication: SALIVARY HYPERSECRETION
     Dosage: 0.15 MG, DAILY
     Route: 065
  6. CLOZAPINE (UNKNOWN) [Suspect]
     Active Substance: CLOZAPINE
     Indication: SCHIZOPHRENIA
     Dosage: 725 MG, DAILY
     Route: 065
  7. CLONAZEPAM (UNKNOWN) [Suspect]
     Active Substance: CLONAZEPAM
     Indication: SCHIZOPHRENIA
     Dosage: 4 MG, DAILY
     Route: 065

REACTIONS (4)
  - Metabolic syndrome [Recovered/Resolved]
  - Sedation [Recovered/Resolved]
  - Akathisia [Unknown]
  - Salivary hypersecretion [Recovered/Resolved]
